FAERS Safety Report 12428430 (Version 1)
Quarter: 2016Q2

REPORT INFORMATION
  Report Type: Spontaneous
  Country: DE (occurrence: DE)
  Receive Date: 20160602
  Receipt Date: 20160602
  Transmission Date: 20160815
  Serious: Yes (Other)
  Sender: FDA-Public Use
  Company Number: DE-HTU-2016DE011865

PATIENT
  Age: 72 Year
  Sex: Female

DRUGS (5)
  1. BELOC-ZOK [Concomitant]
     Active Substance: METOPROLOL SUCCINATE
  2. HEPARIN [Concomitant]
     Active Substance: HEPARIN SODIUM
  3. L-THYROXIN [Concomitant]
     Active Substance: LEVOTHYROXINE SODIUM
  4. AKYNZEO [Suspect]
     Active Substance: NETUPITANT\PALONOSETRON HYDROCHLORIDE
     Dosage: UNK, UNKNOWN
     Route: 065
  5. ATACAND [Concomitant]
     Active Substance: CANDESARTAN CILEXETIL

REACTIONS (1)
  - Type I hypersensitivity [Unknown]

NARRATIVE: CASE EVENT DATE: 20160222
